FAERS Safety Report 17650914 (Version 1)
Quarter: 2020Q2

REPORT INFORMATION
  Report Type: Report from Study
  Country: DE (occurrence: DE)
  Receive Date: 20200409
  Receipt Date: 20200409
  Transmission Date: 20200713
  Serious: Yes (Other)
  Sender: FDA-Public Use
  Company Number: DE-TEVA-2020-DE-1219415

PATIENT
  Age: 48 Year
  Sex: Male

DRUGS (3)
  1. MIRTAZAPINE. [Suspect]
     Active Substance: MIRTAZAPINE
     Indication: MAJOR DEPRESSION
     Dosage: 30 MILLIGRAM DAILY;
     Route: 065
  2. PANTOPRAZOLE [Concomitant]
     Active Substance: PANTOPRAZOLE
     Route: 065
  3. MOCLOBEMIDE [Suspect]
     Active Substance: MOCLOBEMIDE
     Indication: MAJOR DEPRESSION
     Dosage: 300 MILLIGRAM DAILY;
     Route: 065

REACTIONS (1)
  - Drug-induced liver injury [Recovered/Resolved]
